FAERS Safety Report 24033943 (Version 1)
Quarter: 2024Q3

REPORT INFORMATION
  Report Type: Spontaneous
  Country: JP (occurrence: JP)
  Receive Date: 20240701
  Receipt Date: 20240701
  Transmission Date: 20241016
  Serious: Yes (Other)
  Sender: ASTELLAS
  Company Number: JP-ASTELLAS-2021JP009839

PATIENT
  Age: 68 Year
  Sex: Female
  Weight: 38 kg

DRUGS (4)
  1. XOSPATA [Interacting]
     Active Substance: GILTERITINIB
     Indication: Acute myeloid leukaemia refractory
     Route: 048
     Dates: start: 20210427
  2. XOSPATA [Interacting]
     Active Substance: GILTERITINIB
     Route: 048
  3. XOSPATA [Interacting]
     Active Substance: GILTERITINIB
     Route: 048
  4. VORICONAZOLE [Interacting]
     Active Substance: VORICONAZOLE
     Indication: Product used for unknown indication
     Dosage: UNK UNK, UNKNOWN FREQ.
     Route: 065

REACTIONS (9)
  - Acute myeloid leukaemia recurrent [Unknown]
  - White blood cell count decreased [Unknown]
  - Drug level increased [Unknown]
  - Blood creatine phosphokinase increased [Recovered/Resolved]
  - Aspartate aminotransferase increased [Recovered/Resolved]
  - Alanine aminotransferase increased [Recovered/Resolved]
  - Platelet count decreased [Unknown]
  - Drug interaction [Unknown]
  - Off label use [Unknown]
